FAERS Safety Report 8422644-2 (Version None)
Quarter: 2012Q2

REPORT INFORMATION
  Report Type: 
  Country: None (occurrence: None)
  Receive Date: 20120608
  Receipt Date: 20120531
  Transmission Date: 20120825
  Serious: Yes (Hospitalization)
  Sender: FDA-Public Use
  Company Number: JP-VERTEX PHARMACEUTICALS INC.-AE-2012-000701

PATIENT
  Age: 69 Year
  Sex: Female

DRUGS (13)
  1. PEGINTERFERON ALFA-2B [Concomitant]
     Indication: HEPATITIS C
     Route: 051
     Dates: start: 20111206, end: 20120104
  2. DIOVAN [Concomitant]
     Route: 048
     Dates: start: 20111211
  3. AMLODIPINE [Concomitant]
     Route: 048
     Dates: start: 20111211
  4. REBETOL [Concomitant]
     Indication: HEPATITIS C
     Route: 048
     Dates: start: 20111206, end: 20120108
  5. SELBEX [Concomitant]
     Route: 048
     Dates: start: 20111206, end: 20120109
  6. AMLODIPINE [Concomitant]
     Route: 048
  7. LOCHOLEST [Concomitant]
     Route: 048
     Dates: start: 20111219, end: 20120109
  8. ALOSENN [Concomitant]
     Route: 048
     Dates: start: 20120115, end: 20120312
  9. ALLOPURINOL [Concomitant]
     Route: 048
     Dates: end: 20120109
  10. DIOVAN [Concomitant]
     Route: 048
  11. LENDORMIN [Concomitant]
     Route: 048
     Dates: start: 20120114, end: 20120312
  12. TELAVIC (TELAPREVIR) [Suspect]
     Indication: HEPATITIS C
     Route: 048
     Dates: start: 20111206, end: 20120108
  13. DOGMATYL [Concomitant]
     Route: 048

REACTIONS (4)
  - ERYTHEMA MULTIFORME [None]
  - PYREXIA [None]
  - NAUSEA [None]
  - BLOOD URIC ACID INCREASED [None]
